FAERS Safety Report 9768661 (Version 3)
Quarter: 2014Q1

REPORT INFORMATION
  Report Type: Spontaneous
  Country: JP (occurrence: JP)
  Receive Date: 20131218
  Receipt Date: 20140102
  Transmission Date: 20141002
  Serious: Yes (Death)
  Sender: FDA-Public Use
  Company Number: JP-ROCHE-1317154

PATIENT
  Age: 66 Year
  Sex: Female
  Weight: 50 kg

DRUGS (5)
  1. PERJETA [Suspect]
     Indication: BREAST CANCER
     Dosage: STRENGTH: 420 MG/14 ML
     Route: 041
     Dates: start: 20131128
  2. HERCEPTIN [Suspect]
     Indication: BREAST CANCER
     Route: 041
     Dates: start: 20131128
  3. DOCETAXEL [Concomitant]
     Indication: BREAST CANCER
     Dosage: SINGLE DOSE ADMINISTRATION
     Route: 041
     Dates: start: 20131128, end: 20131128
  4. DEXART [Concomitant]
     Indication: PROPHYLAXIS
     Dosage: SINGLE DOSE ADMINISTRATION
     Route: 065
     Dates: start: 20131128, end: 20131128
  5. DECADRON [Concomitant]
     Indication: PROPHYLAXIS
     Route: 048
     Dates: start: 20131129, end: 20131130

REACTIONS (1)
  - Sudden death [Fatal]
